FAERS Safety Report 6368802-2 (Version None)
Quarter: 2009Q3

REPORT INFORMATION
  Report Type: 
  Country: None (occurrence: None)
  Receive Date: 20090922
  Receipt Date: 20090915
  Transmission Date: 20100115
  Serious: Yes (Other)
  Sender: FDA-Public Use
  Company Number: US-ALLERGAN-0912885US

PATIENT
  Sex: Female

DRUGS (1)
  1. FLUOROPLEX [Suspect]
     Indication: CHEILITIS
     Dosage: UNK
     Route: 061

REACTIONS (1)
  - LIP HAEMORRHAGE [None]
